FAERS Safety Report 7511186-4 (Version None)
Quarter: 2011Q2

REPORT INFORMATION
  Report Type: 
  Country: None (occurrence: None)
  Receive Date: 20110531
  Receipt Date: 20110516
  Transmission Date: 20111010
  Serious: Yes (Hospitalization, Other)
  Sender: FDA-Public Use
  Company Number: PHHY2011US41537

PATIENT
  Sex: Female

DRUGS (1)
  1. RECLAST [Suspect]
     Dosage: 5 MG, UNK
     Route: 042

REACTIONS (4)
  - ATRIAL FIBRILLATION [None]
  - ANGINA PECTORIS [None]
  - ATRIOVENTRICULAR BLOCK [None]
  - HYPERTENSION [None]
